FAERS Safety Report 7222986-2 (Version None)
Quarter: 2011Q1

REPORT INFORMATION
  Report Type: 
  Country: None (occurrence: None)
  Receive Date: 20110112
  Receipt Date: 20101122
  Transmission Date: 20110831
  Serious: Yes (Death, Other)
  Sender: FDA-Public Use
  Company Number: PHHY2010US90189

PATIENT
  Age: 60 Year
  Sex: Male

DRUGS (1)
  1. TOBI [Suspect]
     Indication: CYSTIC FIBROSIS
     Dosage: 300 MG/5 ML
     Dates: start: 20071203, end: 20101005

REACTIONS (2)
  - PROSTATE CANCER METASTATIC [None]
  - DEATH [None]
